FAERS Safety Report 20792454 (Version 3)
Quarter: 2022Q3

REPORT INFORMATION
  Report Type: Report from Study
  Country: JP (occurrence: JP)
  Receive Date: 20220506
  Receipt Date: 20220708
  Transmission Date: 20221027
  Serious: Yes (Hospitalization, Other)
  Sender: FDA-Public Use
  Company Number: JP-CHUGAI-2022015913

PATIENT
  Age: 47 Year
  Sex: Female
  Weight: 60.9 kg

DRUGS (9)
  1. ATEZOLIZUMAB [Suspect]
     Active Substance: ATEZOLIZUMAB
     Indication: Breast cancer
     Route: 042
     Dates: start: 20220408, end: 20220408
  2. ATEZOLIZUMAB [Suspect]
     Active Substance: ATEZOLIZUMAB
     Indication: HER2 negative breast cancer
  3. PACLITAXEL [Concomitant]
     Active Substance: PACLITAXEL
     Indication: Breast cancer
     Dosage: 90 MILLIGRAM/SQ. METER
     Route: 042
     Dates: start: 20220408, end: 20220408
  4. PACLITAXEL [Concomitant]
     Active Substance: PACLITAXEL
     Indication: HER2 negative breast cancer
  5. AVASTIN [Concomitant]
     Active Substance: BEVACIZUMAB
     Indication: Breast cancer
     Dosage: 10 MILLIGRAM/KILOGRAM
     Route: 042
     Dates: start: 20220408, end: 20220408
  6. AVASTIN [Concomitant]
     Active Substance: BEVACIZUMAB
     Indication: HER2 negative breast cancer
  7. MAGNESIUM OXIDE [Concomitant]
     Active Substance: MAGNESIUM OXIDE
     Indication: Constipation
     Route: 048
  8. FUNGIZONE [Concomitant]
     Active Substance: AMPHOTERICIN B
     Indication: Oral candidiasis
     Route: 049
  9. CALCIUM CARBONATE\CHOLECALCIFEROL\MAGNESIUM CARBONATE [Concomitant]
     Active Substance: CALCIUM CARBONATE\CHOLECALCIFEROL\MAGNESIUM CARBONATE
     Indication: Prophylaxis
     Dosage: 1 DOSAGE FORM, QD
     Route: 048

REACTIONS (2)
  - Rash maculo-papular [Recovered/Resolved]
  - Enterocolitis [Recovered/Resolved]

NARRATIVE: CASE EVENT DATE: 20220415
